FAERS Safety Report 5067888-5 (Version None)
Quarter: 2006Q3

REPORT INFORMATION
  Report Type: 
  Country: None (occurrence: None)
  Receive Date: 20060714
  Receipt Date: 20050830
  Transmission Date: 20061208
  Serious: Yes (Other)
  Sender: FDA-Public Use
  Company Number: HQWYE229501SEP05

PATIENT
  Age: 55 Year
  Sex: Female
  Weight: 63.56 kg

DRUGS (4)
  1. ADVIL [Suspect]
     Indication: POSTOPERATIVE ANALGESIA
     Dosage: 3 TABLETS EVERY 6 HOURS, ORAL
     Route: 048
     Dates: start: 20050827
  2. ATIVAN [Concomitant]
  3. TOPAMAX [Concomitant]
  4. PERCOCET [Concomitant]

REACTIONS (3)
  - DYSPNOEA [None]
  - HYPERSENSITIVITY [None]
  - OVERDOSE [None]
